FAERS Safety Report 22181193 (Version 2)
Quarter: 2023Q2

REPORT INFORMATION
  Report Type: Spontaneous
  Country: US (occurrence: US)
  Receive Date: 20230406
  Receipt Date: 20230504
  Transmission Date: 20230721
  Serious: No
  Sender: FDA-Public Use
  Company Number: US-PFIZER INC-202300144428

PATIENT
  Age: 75 Year
  Sex: Female
  Weight: 67.846 kg

DRUGS (14)
  1. PAXLOVID [Suspect]
     Active Substance: NIRMATRELVIR\RITONAVIR
     Indication: COVID-19 treatment
     Dosage: UNK
     Route: 048
     Dates: start: 20230326, end: 20230331
  2. ATORVASTATIN [Concomitant]
     Active Substance: ATORVASTATIN
     Dosage: 40 MG
  3. AMLODIPINE BESYLATE\BENAZEPRIL HYDROCHLORIDE [Concomitant]
     Active Substance: AMLODIPINE BESYLATE\BENAZEPRIL HYDROCHLORIDE
     Dosage: 1 DF, 1X/DAY
     Route: 048
  4. COENZYME Q10 [Concomitant]
     Active Substance: DIETARY SUPPLEMENT\UBIDECARENONE
     Dosage: 1 DF, 1X/DAY WITH A MEAL
     Route: 048
  5. VITAMIN D3 [Concomitant]
     Active Substance: CHOLECALCIFEROL
     Dosage: 1 DF, 1X/DAY
     Route: 048
  6. OSTEO BI-FLEX SUNDOWN [Concomitant]
     Dosage: 2 DF, 1X/DAY REGULAR STRENGTH 250-200 MG, 2 TABLET WITH A MEAL
     Route: 048
  7. QUNOL TURMERIC EXTRA STRENGTH [Concomitant]
     Dosage: UNK
  8. QUNOL TURMERIC EXTRA STRENGTH [Concomitant]
     Dosage: 400 MG, 2X/DAY
  9. PSYLLIUM HUSKS [Concomitant]
     Active Substance: PSYLLIUM HUSK
     Dosage: 1 DF, 2X/DAY
     Route: 048
  10. LIPITOR [Concomitant]
     Active Substance: ATORVASTATIN CALCIUM
     Dosage: 1 DF, 1X/DAY
     Route: 048
     Dates: start: 20200817
  11. ESTRACE [Concomitant]
     Active Substance: ESTRADIOL
     Dosage: 2 G, 2X/WEEK
     Route: 067
     Dates: start: 20190813
  12. TIZANIDINE HYDROCHLORIDE [Concomitant]
     Active Substance: TIZANIDINE HYDROCHLORIDE
     Dosage: 1-2 TABLET AS NEEDED AT BED TIME
     Route: 048
     Dates: start: 20230317
  13. VITAMINS [Concomitant]
     Active Substance: VITAMINS
     Dosage: 1 DF, 1X/DAY
     Route: 048
  14. REMDESIVIR [Concomitant]
     Active Substance: REMDESIVIR
     Indication: COVID-19
     Dosage: UNK
     Dates: start: 20230326, end: 20230331

REACTIONS (6)
  - Chills [Recovering/Resolving]
  - Pyrexia [Recovering/Resolving]
  - Decreased appetite [Recovering/Resolving]
  - Nasopharyngitis [Recovering/Resolving]
  - COVID-19 [Recovered/Resolved]
  - Disease recurrence [Recovered/Resolved]

NARRATIVE: CASE EVENT DATE: 20230402
